FAERS Safety Report 23521814 (Version 1)
Quarter: 2024Q1

REPORT INFORMATION
  Report Type: Spontaneous
  Country: FR (occurrence: FR)
  Receive Date: 20240214
  Receipt Date: 20240214
  Transmission Date: 20240410
  Serious: Yes (Other)
  Sender: FDA-Public Use
  Company Number: FR-B.Braun Medical Inc.-2153136

PATIENT
  Age: 15 Year
  Sex: Female

DRUGS (2)
  1. ACETAMINOPHEN [Suspect]
     Active Substance: ACETAMINOPHEN
     Dates: start: 20230818
  2. BROMAZEPAM [Suspect]
     Active Substance: BROMAZEPAM

REACTIONS (6)
  - Off label use [Unknown]
  - Vomiting [Unknown]
  - Mydriasis [Not Recovered/Not Resolved]
  - Balance disorder [Not Recovered/Not Resolved]
  - Product use in unapproved indication [Unknown]
  - Cognitive disorder [Not Recovered/Not Resolved]
